FAERS Safety Report 7465089-4 (Version None)
Quarter: 2011Q2

REPORT INFORMATION
  Report Type: 
  Country: None (occurrence: None)
  Receive Date: 20110509
  Receipt Date: 20110426
  Transmission Date: 20111010
  Serious: Yes (Other)
  Sender: FDA-Public Use
  Company Number: CA-JNJFOC-20100908383

PATIENT
  Sex: Male
  Weight: 41 kg

DRUGS (1)
  1. CONCERTA [Suspect]
     Indication: ATTENTION DEFICIT/HYPERACTIVITY DISORDER
     Dosage: THERAPY DURATION - ONE MONTH
     Route: 048

REACTIONS (3)
  - SPEECH DISORDER [None]
  - TIC [None]
  - DYSKINESIA [None]
